FAERS Safety Report 15314914 (Version 3)
Quarter: 2018Q3

REPORT INFORMATION
  Report Type: Report from Study
  Country: US (occurrence: US)
  Receive Date: 20180824
  Receipt Date: 20180929
  Transmission Date: 20181010
  Serious: Yes (Other)
  Sender: FDA-Public Use
  Company Number: US-TEVA-2018-US-945171

PATIENT
  Age: 58 Year
  Sex: Female

DRUGS (2)
  1. COPAXONE [Suspect]
     Active Substance: GLATIRAMER ACETATE
     Indication: MULTIPLE SCLEROSIS
     Dosage: 120 MILLIGRAM DAILY;
     Route: 058
     Dates: start: 20180629, end: 20180813
  2. COPAXONE [Suspect]
     Active Substance: GLATIRAMER ACETATE
     Route: 058
     Dates: start: 20180304, end: 20180813

REACTIONS (9)
  - Pruritus [Recovered/Resolved]
  - Inappropriate schedule of drug administration [Unknown]
  - Heart rate decreased [Recovered/Resolved]
  - Flushing [Unknown]
  - Palpitations [Unknown]
  - Migraine [Recovered/Resolved]
  - Visual impairment [Recovered/Resolved]
  - Loss of consciousness [Recovered/Resolved]
  - Vasodilatation [Recovered/Resolved]

NARRATIVE: CASE EVENT DATE: 20180813
